FAERS Safety Report 7986589-4 (Version None)
Quarter: 2011Q4

REPORT INFORMATION
  Report Type: 
  Country: None (occurrence: None)
  Receive Date: 20111216
  Receipt Date: 20110729
  Transmission Date: 20120403
  Serious: No
  Sender: FDA-Public Use
  Company Number: US-BRISTOL-MYERS SQUIBB COMPANY-15936651

PATIENT
  Age: 48 Year
  Sex: Female

DRUGS (6)
  1. PAXIL [Concomitant]
  2. ABILIFY [Suspect]
     Indication: DEPRESSION
     Dates: start: 20110713
  3. CLONAZEPAM [Concomitant]
     Dosage: AT BEDTIME
  4. BUSPIRONE HCL [Concomitant]
  5. WELCHOL [Concomitant]
  6. LAMICTAL [Concomitant]
     Dosage: 1DF:200 UNITS NOS

REACTIONS (1)
  - OEDEMA PERIPHERAL [None]
